FAERS Safety Report 9498240 (Version 1)
Quarter: 2013Q3

REPORT INFORMATION
  Report Type: Spontaneous
  Country: GB (occurrence: None)
  Receive Date: 20130830
  Receipt Date: 20130830
  Transmission Date: 20140515
  Serious: Yes (Disabling)
  Sender: FDA-Public Use
  Company Number: GER/UKI/13/0034263

PATIENT
  Age: 53 Year
  Sex: Male

DRUGS (10)
  1. LAMOTRIGINE [Suspect]
     Indication: PRODUCT USED FOR UNKNOWN INDICATION
     Dosage: 200 MG, 2 IN 1 D
  2. OLANZAPINE [Suspect]
  3. ARIPIPRAZOLE [Suspect]
     Indication: PRODUCT USED FOR UNKNOWN INDICATION
     Dosage: 15 MG, 1 IN 1 D
  4. LITHIUM (LITHIUM) [Suspect]
     Dosage: 1000 MG, 1 IN 1 D
  5. VENLAFAXINE (VENLAFAXINE) [Suspect]
     Indication: PRODUCT USED FOR UNKNOWN INDICATION
  6. ATORVASTATIN (ATORVASTATIN) [Concomitant]
  7. HUMALOG (INSULIN LISPRO) [Concomitant]
  8. INDAPAMIDE (INDAPAMIDE) [Concomitant]
  9. INSULIN GLARGINE (INSULIN GLARGINE) [Concomitant]
  10. PERINDOPRIL (PERINDOPRIL) [Concomitant]

REACTIONS (7)
  - Dysphagia [None]
  - Tremor [None]
  - Hyperhidrosis [None]
  - Balance disorder [None]
  - Fall [None]
  - Movement disorder [None]
  - Cerebellar atrophy [None]
